FAERS Safety Report 6489685-6 (Version None)
Quarter: 2009Q4

REPORT INFORMATION
  Report Type: 
  Country: None (occurrence: None)
  Receive Date: 20091207
  Receipt Date: 20091119
  Transmission Date: 20100525
  Serious: No
  Sender: FDA-Public Use
  Company Number: 014904

PATIENT
  Age: 63 Year
  Sex: Male

DRUGS (1)
  1. PRIALT [Suspect]
     Indication: PAIN
     Dosage: 0.083 UG, ONCE/HOUR, INTRATHECAL; 0.041 UG, ONCE/HOUR, INTRATHECAL
     Route: 037

REACTIONS (1)
  - HEPATIC ENZYME ABNORMAL [None]
